FAERS Safety Report 20239207 (Version 4)
Quarter: 2022Q2

REPORT INFORMATION
  Report Type: Report from Study
  Country: US (occurrence: US)
  Receive Date: 20211228
  Receipt Date: 20220511
  Transmission Date: 20220721
  Serious: Yes (Hospitalization)
  Sender: FDA-Public Use
  Company Number: US-GLAXOSMITHKLINE-US2021GSK224325

PATIENT
  Age: 57 Year
  Sex: Female
  Weight: 58.4 kg

DRUGS (6)
  1. DOSTARLIMAB [Suspect]
     Active Substance: DOSTARLIMAB
     Indication: Endometrial cancer recurrent
     Dosage: 500 MG
     Dates: start: 20210105, end: 20210105
  2. DOSTARLIMAB [Suspect]
     Active Substance: DOSTARLIMAB
     Dosage: 1000 MG
     Dates: start: 20210914, end: 20210914
  3. CARBOPLATIN [Suspect]
     Active Substance: CARBOPLATIN
     Indication: Endometrial cancer recurrent
     Dosage: 5 AUC
     Route: 042
     Dates: start: 20210105, end: 20210105
  4. CARBOPLATIN [Suspect]
     Active Substance: CARBOPLATIN
     Dosage: 570 AUC
     Route: 042
     Dates: start: 20210420, end: 20210420
  5. PACLITAXEL [Suspect]
     Active Substance: PACLITAXEL
     Indication: Endometrial cancer recurrent
     Dosage: 175 MG/M2
     Route: 042
     Dates: start: 20210105, end: 20210105
  6. PACLITAXEL [Suspect]
     Active Substance: PACLITAXEL
     Dosage: 175 MG/M2
     Route: 042
     Dates: start: 20210420, end: 20210420

REACTIONS (1)
  - Pulmonary embolism [Recovered/Resolved]

NARRATIVE: CASE EVENT DATE: 20211022
